FAERS Safety Report 20459581 (Version 1)
Quarter: 2022Q1

REPORT INFORMATION
  Report Type: Spontaneous
  Country: US (occurrence: US)
  Receive Date: 20220211
  Receipt Date: 20220211
  Transmission Date: 20220423
  Serious: Yes (Hospitalization, Other)
  Sender: FDA-Public Use
  Company Number: US-SA-SAC20220205000617

PATIENT
  Age: 38 Year
  Sex: Male
  Weight: 63.5 kg

DRUGS (15)
  1. FABRAZYME [Suspect]
     Active Substance: AGALSIDASE BETA
     Indication: Fabry^s disease
     Dosage: 65 MG, QOW
     Route: 042
     Dates: start: 20141009
  2. ACETAMINOPHEN [Concomitant]
     Active Substance: ACETAMINOPHEN
  3. DIPHENHYDRAMINE [Concomitant]
     Active Substance: DIPHENHYDRAMINE
  4. STERILE WATER [Concomitant]
     Active Substance: WATER
  5. EPINEPHRINE [Concomitant]
     Active Substance: EPINEPHRINE
  6. ZZZQUIL NIGHTTIME SLEEP-AID [Concomitant]
     Active Substance: DIPHENHYDRAMINE HYDROCHLORIDE
  7. SOLU-CORTEF [Concomitant]
     Active Substance: HYDROCORTISONE SODIUM SUCCINATE
  8. ACETAMINOPHEN\HYDROCODONE [Concomitant]
     Active Substance: ACETAMINOPHEN\HYDROCODONE
  9. CELEBREX [Concomitant]
     Active Substance: CELECOXIB
  10. NEURONTIN [Concomitant]
     Active Substance: GABAPENTIN
  11. TEGRETOL [Concomitant]
     Active Substance: CARBAMAZEPINE
  12. TRAMADOL [Concomitant]
     Active Substance: TRAMADOL
  13. CARBAMAZEPINE [Concomitant]
     Active Substance: CARBAMAZEPINE
  14. SODIUM CHLORIDE [Concomitant]
     Active Substance: SODIUM CHLORIDE
  15. NIGHTTIME COLD + FLU RELIEF [Concomitant]

REACTIONS (2)
  - Appendicitis perforated [Unknown]
  - Abscess [Unknown]
